FAERS Safety Report 13519242 (Version 3)
Quarter: 2017Q2

REPORT INFORMATION
  Report Type: Spontaneous
  Country: BR (occurrence: BR)
  Receive Date: 20170505
  Receipt Date: 20170517
  Transmission Date: 20170830
  Serious: Yes (Death, Hospitalization, Other)
  Sender: FDA-Public Use
  Company Number: BR-ALEXION-A201704548

PATIENT
  Age: 38 Year
  Sex: Male

DRUGS (1)
  1. SOLIRIS [Suspect]
     Active Substance: ECULIZUMAB
     Indication: HAEMOLYTIC URAEMIC SYNDROME
     Dosage: 900 MG, FOR 4 WEEKS
     Route: 042
     Dates: start: 20170324, end: 20170413

REACTIONS (13)
  - Gastroenteritis [Unknown]
  - Confusional state [Unknown]
  - Infection [Unknown]
  - Mucosal haemorrhage [Unknown]
  - Condition aggravated [Unknown]
  - Impaired self-care [Recovered/Resolved]
  - Helminthic infection [Fatal]
  - Diarrhoea haemorrhagic [Recovering/Resolving]
  - Ascariasis [Unknown]
  - Haemolysis [Unknown]
  - Renal impairment [Unknown]
  - C-reactive protein increased [Unknown]
  - Vomiting [Recovering/Resolving]

NARRATIVE: CASE EVENT DATE: 20170419
